FAERS Safety Report 26041553 (Version 1)
Quarter: 2025Q4

REPORT INFORMATION
  Report Type: Spontaneous
  Country: PR (occurrence: PR)
  Receive Date: 20251113
  Receipt Date: 20251113
  Transmission Date: 20260117
  Serious: No
  Sender: MERCK SHARP & DOHME LLC
  Company Number: PR-009507513-2342780

PATIENT
  Age: 67 Year
  Sex: Female

DRUGS (2)
  1. PEMBROLIZUMAB [Suspect]
     Active Substance: PEMBROLIZUMAB
     Indication: Urethral cancer
  2. LENVATINIB [Concomitant]
     Active Substance: LENVATINIB
     Indication: Urethral cancer

REACTIONS (1)
  - Off label use [Unknown]
